FAERS Safety Report 5188052-5 (Version None)
Quarter: 2006Q4

REPORT INFORMATION
  Report Type: 
  Country: None (occurrence: None)
  Receive Date: 20061221
  Receipt Date: 20051207
  Transmission Date: 20070319
  Serious: Yes (Hospitalization, Other)
  Sender: FDA-Public Use
  Company Number: PHBS2005JP18166

PATIENT
  Age: 3 Year
  Sex: Male

DRUGS (26)
  1. CELLCEPT [Suspect]
     Indication: HEART TRANSPLANT
     Dosage: 100 MG/D
     Route: 048
     Dates: start: 20040317, end: 20041017
  2. CELLCEPT [Suspect]
     Dosage: 50 MG/D
     Route: 048
     Dates: start: 20041018, end: 20041021
  3. CELLCEPT [Suspect]
     Dosage: 50 MG/D
     Route: 048
     Dates: start: 20041115, end: 20041124
  4. CELLCEPT [Suspect]
     Dosage: 50 MG/D
     Route: 048
     Dates: start: 20031126, end: 20040316
  5. IMURAN [Suspect]
     Indication: HEART TRANSPLANT
     Dosage: 6 MG/D
     Route: 048
     Dates: start: 20030526, end: 20030625
  6. IMURAN [Suspect]
     Dosage: 4 MG/D
     Route: 048
     Dates: start: 20030626, end: 20030703
  7. IMURAN [Suspect]
     Dosage: 3 MG/D
     Route: 048
     Dates: start: 20030704, end: 20030711
  8. IMURAN [Suspect]
     Dosage: 3 MG/D
     Route: 048
     Dates: start: 20030821, end: 20030903
  9. NEORAL [Suspect]
     Indication: HEART TRANSPLANT
     Dosage: 69 MG/D
     Route: 048
     Dates: start: 20030526, end: 20030805
  10. NEORAL [Suspect]
     Dosage: 75 MG/D
     Route: 048
     Dates: start: 20030806, end: 20031103
  11. NEORAL [Suspect]
     Dosage: 69 MG/D
     Route: 048
     Dates: start: 20031104, end: 20040120
  12. NEORAL [Suspect]
     Dosage: 63 MG/D
     Route: 048
     Dates: start: 20040121, end: 20040720
  13. NEORAL [Suspect]
     Dosage: 60 MG/D
     Route: 048
     Dates: start: 20040721, end: 20040829
  14. NEORAL [Suspect]
     Dosage: 57 MG/D
     Route: 048
     Dates: start: 20040830, end: 20040905
  15. NEORAL [Suspect]
     Dosage: 60 MG/D
     Route: 048
     Dates: start: 20040906, end: 20061017
  16. NEORAL [Suspect]
     Dosage: 54 MG/D
     Route: 048
     Dates: start: 20041018, end: 20041020
  17. NEORAL [Suspect]
     Dosage: 57 MG/D
     Route: 048
     Dates: start: 20041021, end: 20041101
  18. NEORAL [Suspect]
     Dosage: 48 MG/D
     Route: 048
     Dates: start: 20041102, end: 20041103
  19. NEORAL [Suspect]
     Dosage: 42 MG/D
     Route: 048
     Dates: start: 20041104, end: 20041108
  20. NEORAL [Suspect]
     Dosage: 36 MG/D
     Route: 048
     Dates: start: 20041109, end: 20041110
  21. NEORAL [Suspect]
     Dosage: 30 MG/D
     Route: 048
     Dates: start: 20041111, end: 20041114
  22. NEORAL [Suspect]
     Dosage: 33 MG/D
     Route: 048
     Dates: start: 20041115, end: 20041123
  23. NEORAL [Suspect]
     Dosage: 31.5 MG/D
     Route: 048
     Dates: start: 20041124, end: 20050103
  24. NEORAL [Suspect]
     Dosage: 30 MG/D
     Route: 048
     Dates: start: 20050104, end: 20050106
  25. NEORAL [Suspect]
     Dosage: 27 MG/D
     Route: 048
     Dates: start: 20050107, end: 20050112
  26. NEORAL [Suspect]
     Dosage: 28.5 MG/D
     Route: 048
     Dates: start: 20050113

REACTIONS (15)
  - ABDOMINAL DISCOMFORT [None]
  - ABDOMINAL MASS [None]
  - ABDOMINAL NEOPLASM [None]
  - ABDOMINAL PAIN [None]
  - BLOOD LACTATE DEHYDROGENASE INCREASED [None]
  - BONE MARROW FAILURE [None]
  - BURKITT'S LYMPHOMA [None]
  - C-REACTIVE PROTEIN INCREASED [None]
  - CYTOMEGALOVIRUS INFECTION [None]
  - DIFFUSE LARGE B-CELL LYMPHOMA [None]
  - EPSTEIN-BARR VIRUS INFECTION [None]
  - LEUKOPENIA [None]
  - MOROSE [None]
  - TONSILLITIS [None]
  - WHITE BLOOD CELL COUNT INCREASED [None]
